FAERS Safety Report 6673176-3 (Version None)
Quarter: 2010Q2

REPORT INFORMATION
  Report Type: 
  Country: None (occurrence: None)
  Receive Date: 20100406
  Receipt Date: 20100322
  Transmission Date: 20101027
  Serious: Yes (Other)
  Sender: FDA-Public Use
  Company Number: AUR-APL-2010-00928

PATIENT
  Age: 74 Year
  Sex: Male

DRUGS (1)
  1. RISPERIDONE [Suspect]

REACTIONS (8)
  - CEREBRAL ATROPHY [None]
  - CONTUSION [None]
  - EXTRAPYRAMIDAL DISORDER [None]
  - FALL [None]
  - GLABELLAR REFLEX ABNORMAL [None]
  - MUSCLE RIGIDITY [None]
  - PALMOMENTAL REFLEX [None]
  - TREMOR [None]
